FAERS Safety Report 5428898-9 (Version None)
Quarter: 2007Q3

REPORT INFORMATION
  Report Type: 
  Country: None (occurrence: None)
  Receive Date: 20070827
  Receipt Date: 20070821
  Transmission Date: 20080115
  Serious: Yes (Disabling)
  Sender: FDA-Public Use
  Company Number: 2007SP014284

PATIENT
  Age: 57 Year
  Sex: Male

DRUGS (11)
  1. PEG-INTRON [Suspect]
     Indication: HEPATITIS C
     Dosage: 150 MCG; QW; SC
     Route: 058
     Dates: start: 20070222, end: 20070703
  2. REBETOL [Suspect]
     Indication: HEPATITIS C
     Dosage: 1400 MG;QW; PO;  1000 MG;QD; PO
     Route: 048
     Dates: start: 20070222, end: 20070321
  3. REBETOL [Suspect]
     Indication: HEPATITIS C
     Dosage: 1400 MG;QW; PO;  1000 MG;QD; PO
     Route: 048
     Dates: start: 20070321, end: 20070709
  4. OMEPRAZOLE [Concomitant]
  5. ALLOPURINOL [Concomitant]
  6. ATENOLOL [Concomitant]
  7. LEVOTHYROXINE SODIUM [Concomitant]
  8. LORAZEPAM [Concomitant]
  9. FOLIC ACID [Concomitant]
  10. FENTANYL [Concomitant]
  11. COMPAZINE [Concomitant]

REACTIONS (6)
  - ALANINE AMINOTRANSFERASE INCREASED [None]
  - BLOOD BILIRUBIN INCREASED [None]
  - DIZZINESS [None]
  - FEELING ABNORMAL [None]
  - NAUSEA [None]
  - VOMITING [None]
